FAERS Safety Report 8123266-3 (Version None)
Quarter: 2012Q1

REPORT INFORMATION
  Report Type: 
  Country: None (occurrence: None)
  Receive Date: 20120208
  Receipt Date: 20120202
  Transmission Date: 20120608
  Serious: Yes (Hospitalization, Other)
  Sender: FDA-Public Use
  Company Number: US-ABBOTT-12P-163-0899307-00

PATIENT
  Sex: Male
  Weight: 86.26 kg

DRUGS (9)
  1. PREDNISONE [Concomitant]
     Indication: RHEUMATOID ARTHRITIS
  2. POT CHLOR  CAPS [Concomitant]
     Indication: PRODUCT USED FOR UNKNOWN INDICATION
  3. FOLIC ACID [Concomitant]
     Indication: VITAMIN SUPPLEMENTATION
  4. HUMIRA [Suspect]
     Indication: RHEUMATOID ARTHRITIS
  5. METHOTREXATE [Concomitant]
     Indication: RHEUMATOID ARTHRITIS
  6. WARFARIN SODIUM [Concomitant]
     Indication: PRODUCT USED FOR UNKNOWN INDICATION
  7. HUMIRA [Suspect]
  8. UNNAMED MEDICATION [Concomitant]
     Indication: CARDIAC DISORDER
  9. DIOVAN [Concomitant]
     Indication: CARDIAC DISORDER

REACTIONS (10)
  - LUNG INFECTION [None]
  - NEURALGIA [None]
  - EMPHYSEMA [None]
  - DRUG INEFFECTIVE [None]
  - BACK DISORDER [None]
  - ARTHRALGIA [None]
  - MUSCLE SPASMS [None]
  - CARDIAC PACEMAKER INSERTION [None]
  - BRONCHITIS CHRONIC [None]
  - INFECTION [None]
